FAERS Safety Report 23432522 (Version 1)
Quarter: 2024Q1

REPORT INFORMATION
  Report Type: Spontaneous
  Country: TR (occurrence: TR)
  Receive Date: 20240123
  Receipt Date: 20240123
  Transmission Date: 20240409
  Serious: Yes (Death, Life-Threatening, Other)
  Sender: FDA-Public Use
  Company Number: TR-PFIZER INC-PV202400008885

PATIENT
  Age: 26 Year
  Sex: Male

DRUGS (7)
  1. FLUCONAZOLE [Suspect]
     Active Substance: FLUCONAZOLE
     Indication: Cryptococcal fungaemia
     Dosage: 800 MG, DAILY
  2. SULFAMETHOXAZOLE\TRIMETHOPRIM [Suspect]
     Active Substance: SULFAMETHOXAZOLE\TRIMETHOPRIM
     Indication: Pneumocystis jirovecii pneumonia
     Dosage: 15 MG/KG, DAILY
     Route: 042
  3. AMPHOTERICIN B [Suspect]
     Active Substance: AMPHOTERICIN B
     Indication: Cryptococcal fungaemia
     Dosage: 5 MG/KG, DAILY
  4. METHYLPREDNISOLONE [Concomitant]
     Active Substance: METHYLPREDNISOLONE
     Indication: Pneumocystis jirovecii pneumonia
     Dosage: 80 MG, DAILY
     Route: 042
  5. MOXIFLOXACIN [Concomitant]
     Active Substance: MOXIFLOXACIN
     Indication: Pneumocystis jirovecii pneumonia
     Dosage: 400 MG (1X400 MG)
     Route: 042
  6. MEROPENEM [Concomitant]
     Active Substance: MEROPENEM
     Indication: Evidence based treatment
     Dosage: 2 G, 3X/DAY
  7. POLYMYXIN B [Concomitant]
     Active Substance: POLYMYXIN B
     Indication: Evidence based treatment
     Dosage: 25000 IU/KG, DAILY
     Route: 042

REACTIONS (1)
  - Drug ineffective [Fatal]
